FAERS Safety Report 5315382-6 (Version None)
Quarter: 2007Q2

REPORT INFORMATION
  Report Type: 
  Country: None (occurrence: None)
  Receive Date: 20070503
  Receipt Date: 20070412
  Transmission Date: 20071010
  Serious: Yes (Other)
  Sender: FDA-Public Use
  Company Number: US-RB-3222-2006

PATIENT
  Sex: Female

DRUGS (4)
  1. SUBUTEX [Suspect]
     Route: 060
     Dates: start: 20060502
  2. SUBUTEX [Suspect]
     Dosage: CUMULATIVE DOSE:  3  MG
     Route: 060
     Dates: start: 20060501, end: 20060501
  3. SUBOXONE [Suspect]
     Route: 060
  4. BIRTH CONTROL PATCH [Concomitant]

REACTIONS (2)
  - ABORTION INDUCED [None]
  - DRUG EXPOSURE DURING PREGNANCY [None]
